FAERS Safety Report 15557248 (Version 4)
Quarter: 2019Q2

REPORT INFORMATION
  Report Type: Report from Study
  Country: US (occurrence: US)
  Receive Date: 20181026
  Receipt Date: 20190607
  Transmission Date: 20190711
  Serious: No
  Sender: FDA-Public Use
  Company Number: PHEH2018US045739

PATIENT
  Sex: Male

DRUGS (2)
  1. ENTRESTO [Suspect]
     Active Substance: SACUBITRIL\VALSARTAN
     Dosage: 0.5 DF, UNK
     Route: 065
  2. ENTRESTO [Suspect]
     Active Substance: SACUBITRIL\VALSARTAN
     Indication: PRODUCT USED FOR UNKNOWN INDICATION
     Dosage: UNK, BID
     Route: 048

REACTIONS (9)
  - Eye disorder [Unknown]
  - Swelling face [Unknown]
  - Wrong technique in device usage process [Unknown]
  - Lip swelling [Unknown]
  - Chapped lips [Unknown]
  - Blood cholesterol increased [Unknown]
  - Dry mouth [Unknown]
  - Product prescribing error [Unknown]
  - Muscular weakness [Unknown]
